FAERS Safety Report 15525733 (Version 1)
Quarter: 2018Q4

REPORT INFORMATION
  Report Type: Spontaneous
  Country: JP (occurrence: JP)
  Receive Date: 20181018
  Receipt Date: 20181018
  Transmission Date: 20190205
  Serious: Yes (Hospitalization)
  Sender: FDA-Public Use
  Company Number: JP-MYLANLABS-2018M1076972

PATIENT
  Age: 71 Year
  Sex: Male

DRUGS (1)
  1. BETAMETHASONE. [Suspect]
     Active Substance: BETAMETHASONE
     Indication: PRURITUS
     Route: 048

REACTIONS (4)
  - Withdrawal syndrome [Recovered/Resolved]
  - Adrenal insufficiency [Recovered/Resolved]
  - Familial mediterranean fever [Recovered/Resolved]
  - Pleural effusion [Recovered/Resolved]
